FAERS Safety Report 4466806-8 (Version None)
Quarter: 2004Q4

REPORT INFORMATION
  Report Type: 
  Country: None (occurrence: None)
  Receive Date: 20041001
  Receipt Date: 20041001
  Transmission Date: 20050328
  Serious: Yes (Life-Threatening, Disabling, Other)
  Sender: FDA-Public Use
  Company Number: None

PATIENT
  Age: 48 Year
  Sex: Male
  Weight: 108.8633 kg

DRUGS (2)
  1. VIOXX [Suspect]
     Indication: ARTHRALGIA
     Dosage: AS NEEDED AS NEEDED UNKNOWN
     Route: 065
     Dates: start: 20040802, end: 20041001
  2. VIOXX [Suspect]
     Indication: ARTHRITIS
     Dosage: AS NEEDED AS NEEDED UNKNOWN
     Route: 065
     Dates: start: 20040802, end: 20041001

REACTIONS (1)
  - BLOOD PRESSURE INCREASED [None]
